FAERS Safety Report 17767610 (Version 2)
Quarter: 2021Q4

REPORT INFORMATION
  Report Type: Spontaneous
  Country: PL (occurrence: PL)
  Receive Date: 20200511
  Receipt Date: 20211013
  Transmission Date: 20220303
  Serious: Yes (Hospitalization)
  Sender: FDA-Public Use
  Company Number: None

PATIENT
  Age: 46 Year
  Sex: Male
  Weight: 70 kg

DRUGS (4)
  1. IBUPROFEN [Suspect]
     Active Substance: IBUPROFEN
     Indication: Respiratory tract infection
     Dosage: 400 MILLIGRAM, Q8H
     Route: 048
     Dates: start: 20190202, end: 20190206
  2. IBUPROFEN [Suspect]
     Active Substance: IBUPROFEN
     Dosage: UNK
  3. INOSINE PRANOBEX [Suspect]
     Active Substance: INOSINE PRANOBEX
     Indication: Respiratory tract infection
     Dosage: 1 DOSAGE FORM, 12 HOURS
     Route: 048
     Dates: start: 20190202, end: 20190203
  4. LEVOFLOXACIN [Suspect]
     Active Substance: LEVOFLOXACIN
     Indication: Respiratory tract infection
     Dosage: 1 DOSAGE FORM, 12 HOURS
     Route: 048
     Dates: start: 20190205, end: 20190208

REACTIONS (3)
  - Erythema [Recovered/Resolved]
  - Rash papular [Recovered/Resolved]
  - Off label use [Unknown]

NARRATIVE: CASE EVENT DATE: 20190202
